FAERS Safety Report 16710858 (Version 1)
Quarter: 2019Q3

REPORT INFORMATION
  Report Type: Spontaneous
  Country: US (occurrence: US)
  Receive Date: 20190816
  Receipt Date: 20190816
  Transmission Date: 20191004
  Serious: Yes (Hospitalization, Other)
  Sender: FDA-Public Use
  Company Number: US-MYLANLABS-2019M1076133

PATIENT
  Age: 7 Decade
  Sex: Male

DRUGS (18)
  1. VANCOMYCIN [Suspect]
     Active Substance: VANCOMYCIN
     Indication: ENDOPHTHALMITIS
     Route: 050
     Dates: start: 2018
  2. NIVOLUMAB [Suspect]
     Active Substance: NIVOLUMAB
     Indication: METASTATIC MALIGNANT MELANOMA
     Dosage: ADMINISTERED IN CYCLES OF 21 DAYS ALONGSIDE IPILIMUMAB
     Route: 065
     Dates: start: 201701, end: 201704
  3. GENTAMICIN. [Suspect]
     Active Substance: GENTAMICIN
     Indication: LISTERIOSIS
     Route: 065
     Dates: start: 2018
  4. CEFTAZIDIME. [Suspect]
     Active Substance: CEFTAZIDIME
     Indication: LISTERIOSIS
     Route: 065
     Dates: start: 2018
  5. VANCOMYCIN [Suspect]
     Active Substance: VANCOMYCIN
     Indication: LISTERIOSIS
  6. IPILIMUMAB [Suspect]
     Active Substance: IPILIMUMAB
     Indication: METASTATIC MALIGNANT MELANOMA
     Dosage: ADMINISTERED IN CYCLES OF 21 DAYS ALONGSIDE NIVOLUMAB
     Route: 065
     Dates: start: 201701, end: 201704
  7. INFLIXIMAB [Suspect]
     Active Substance: INFLIXIMAB
     Indication: AUTOIMMUNE COLITIS
     Dosage: SINGLE DOSE
     Route: 065
     Dates: start: 201712, end: 201712
  8. GENTAMICIN. [Suspect]
     Active Substance: GENTAMICIN
     Indication: ENDOPHTHALMITIS
  9. TRIAMCINOLONE [Suspect]
     Active Substance: TRIAMCINOLONE
     Indication: ENDOPHTHALMITIS
  10. METHYLPREDNISOLONE. [Suspect]
     Active Substance: METHYLPREDNISOLONE
     Indication: AUTOIMMUNE COLITIS
     Dosage: 100 MILLIGRAM
     Route: 042
     Dates: start: 201712
  11. TRIAMCINOLONE [Suspect]
     Active Substance: TRIAMCINOLONE
     Indication: LISTERIOSIS
     Route: 061
     Dates: start: 201802
  12. NIVOLUMAB [Suspect]
     Active Substance: NIVOLUMAB
     Dosage: DOSE INCREASED
     Route: 065
     Dates: start: 201704, end: 201712
  13. TRIAMCINOLONE [Suspect]
     Active Substance: TRIAMCINOLONE
     Indication: ENDOPHTHALMITIS
  14. AMPICILLIN [Suspect]
     Active Substance: AMPICILLIN
     Indication: ENDOPHTHALMITIS
  15. CEFTAZIDIME. [Suspect]
     Active Substance: CEFTAZIDIME
     Indication: ENDOPHTHALMITIS
  16. TRIAMCINOLONE [Suspect]
     Active Substance: TRIAMCINOLONE
     Indication: LISTERIOSIS
     Dosage: 4 MILLIGRAM
     Route: 050
  17. AMPICILLIN [Suspect]
     Active Substance: AMPICILLIN
     Indication: LISTERIOSIS
     Route: 042
     Dates: start: 2018
  18. METHYLPREDNISOLONE. [Suspect]
     Active Substance: METHYLPREDNISOLONE
     Indication: AUTOIMMUNE COLITIS
     Dosage: ORAL TAPER OVER 3 WEEKS
     Route: 048

REACTIONS (4)
  - Endophthalmitis [Not Recovered/Not Resolved]
  - Drug ineffective [Unknown]
  - Condition aggravated [Unknown]
  - Listeriosis [Not Recovered/Not Resolved]

NARRATIVE: CASE EVENT DATE: 201712
